FAERS Safety Report 20879104 (Version 1)
Quarter: 2022Q2

REPORT INFORMATION
  Report Type: Spontaneous
  Country: TW (occurrence: TW)
  Receive Date: 20220526
  Receipt Date: 20220526
  Transmission Date: 20220721
  Serious: Yes (Hospitalization, Other)
  Sender: FDA-Public Use
  Company Number: TW-DSJP-DSJ-2022-117614

PATIENT
  Age: 80 Year
  Sex: Female
  Weight: 71 kg

DRUGS (1)
  1. EDOXABAN [Suspect]
     Active Substance: EDOXABAN
     Indication: Product used for unknown indication
     Dosage: 30 MG, QD
     Route: 048

REACTIONS (4)
  - Upper gastrointestinal haemorrhage [Unknown]
  - Anaemia [Unknown]
  - Prothrombin time prolonged [Unknown]
  - Renal impairment [Unknown]
